FAERS Safety Report 9368893 (Version 1)
Quarter: 2013Q2

REPORT INFORMATION
  Report Type: Spontaneous
  Country: DE (occurrence: DE)
  Receive Date: 20130626
  Receipt Date: 20130626
  Transmission Date: 20140414
  Serious: Yes (Hospitalization)
  Sender: FDA-Public Use
  Company Number: DE-AMGEN-DEUSP2013044166

PATIENT
  Sex: 0

DRUGS (11)
  1. NEULASTA [Suspect]
     Indication: PRODUCT USED FOR UNKNOWN INDICATION
     Dosage: 6 MG, UNK
     Route: 058
     Dates: start: 20130606
  2. ADRIAMYCIN /00330901/ [Suspect]
     Indication: HODGKIN^S DISEASE
     Dosage: 35 MG/M2, UNK
     Dates: start: 20130603
  3. BLEOMYCIN [Suspect]
     Indication: HODGKIN^S DISEASE
     Dosage: 10 MG/M2, UNK
     Dates: start: 20130610
  4. PROCARBAZINE [Suspect]
     Indication: HODGKIN^S DISEASE
     Dosage: 100 MG/M2, UNK
     Dates: start: 20130603
  5. VINCRISTINE [Suspect]
     Indication: HODGKIN^S DISEASE
     Dosage: 1.4 MG/M2, UNK
     Dates: start: 20130610
  6. ETOPOSIDE [Suspect]
     Indication: HODGKIN^S DISEASE
     Dosage: 1.75 MG/M2, UNK
     Dates: start: 20130603
  7. CYCLOPHOSPHAMIDE [Suspect]
     Indication: HODGKIN^S DISEASE
     Dosage: 1000 MG/M2, UNK
     Dates: start: 20130603
  8. PREDNISONE [Suspect]
     Indication: HODGKIN^S DISEASE
     Dosage: 40 MG/M2, UNK
     Dates: start: 20130603
  9. COTRIM FORTE [Concomitant]
     Dosage: 2 X 800/160
     Route: 048
     Dates: start: 20130422
  10. AMPHO-MORONAL [Concomitant]
     Dosage: 40 X 10MG/D
     Dates: start: 20130422
  11. PANTOZOL                           /01263204/ [Concomitant]
     Dosage: 60 MG/D
     Dates: start: 20130422

REACTIONS (5)
  - Bone pain [Recovered/Resolved]
  - Blood glucose abnormal [Recovered/Resolved]
  - C-reactive protein increased [Recovered/Resolved]
  - Decreased appetite [Recovered/Resolved]
  - General physical condition abnormal [Recovered/Resolved]
